FAERS Safety Report 22298744 (Version 2)
Quarter: 2023Q2

REPORT INFORMATION
  Report Type: Spontaneous
  Country: US (occurrence: None)
  Receive Date: 20230509
  Receipt Date: 20230524
  Transmission Date: 20230721
  Serious: No
  Sender: FDA-Public Use
  Company Number: 2023A104403

PATIENT
  Age: 83 Year
  Sex: Female

DRUGS (2)
  1. FARXIGA [Suspect]
     Active Substance: DAPAGLIFLOZIN PROPANEDIOL
     Indication: Renal disorder
     Dosage: 10.0MG UNKNOWN
     Route: 048
  2. FARXIGA [Suspect]
     Active Substance: DAPAGLIFLOZIN PROPANEDIOL
     Indication: Renal disorder
     Dosage: 10.0MG UNKNOWN
     Route: 048
     Dates: start: 20221115, end: 20230419

REACTIONS (23)
  - Dehydration [Unknown]
  - Lethargy [Unknown]
  - Pain [Unknown]
  - Neuralgia [Unknown]
  - Dyspnoea [Unknown]
  - Pyrexia [Unknown]
  - Diarrhoea [Unknown]
  - Nausea [Unknown]
  - Blood creatine increased [Unknown]
  - Blood potassium increased [Unknown]
  - Blood calcium increased [Unknown]
  - Palpitations [Unknown]
  - Blood pressure increased [Unknown]
  - Tremor [Unknown]
  - Osteoporosis [Unknown]
  - Arthritis [Unknown]
  - Underdose [Unknown]
  - Insomnia [Unknown]
  - Gait disturbance [Unknown]
  - Restless legs syndrome [Unknown]
  - Pruritus [Unknown]
  - Fatigue [Unknown]
  - Drug ineffective [Unknown]
